FAERS Safety Report 25614517 (Version 1)
Quarter: 2025Q3

REPORT INFORMATION
  Report Type: Spontaneous
  Country: CA (occurrence: CA)
  Receive Date: 20250729
  Receipt Date: 20250729
  Transmission Date: 20251021
  Serious: Yes (Other)
  Sender: ACCORD
  Company Number: None

PATIENT
  Age: 29 Year
  Sex: Male

DRUGS (1)
  1. METHOTREXATE SODIUM [Suspect]
     Active Substance: METHOTREXATE SODIUM
     Indication: Takayasu^s arteritis
     Route: 048

REACTIONS (7)
  - Neck pain [Unknown]
  - Xerophthalmia [Unknown]
  - Vision blurred [Unknown]
  - Constipation [Unknown]
  - Off label use [Unknown]
  - Condition aggravated [Unknown]
  - Haematochezia [Unknown]
